FAERS Safety Report 10640643 (Version 2)
Quarter: 2014Q4

REPORT INFORMATION
  Report Type: Report from Study
  Country: JP (occurrence: JP)
  Receive Date: 20141209
  Receipt Date: 20141209
  Transmission Date: 20150529
  Serious: Yes (Death, Hospitalization)
  Sender: FDA-Public Use
  Company Number: PHHO2003JP04252

PATIENT
  Age: 76 Year
  Sex: Female
  Weight: 43 kg

DRUGS (16)
  1. HYDREA [Concomitant]
     Active Substance: HYDROXYUREA
     Indication: CHRONIC MYELOID LEUKAEMIA
  2. BUFFERIN [Concomitant]
     Active Substance: ASPIRIN
     Indication: PRODUCT USED FOR UNKNOWN INDICATION
     Route: 065
     Dates: start: 20030217, end: 20030805
  3. STI571 [Suspect]
     Active Substance: IMATINIB MESYLATE
     Dosage: 200 MG, QW2
     Route: 048
     Dates: start: 20030609, end: 20030619
  4. PREDONINE [Concomitant]
     Active Substance: PREDNISOLONE\PREDNISOLONE ACETATE\PREDNISOLONE SODIUM SUCCINATE
     Indication: CHRONIC MYELOID LEUKAEMIA
     Route: 065
     Dates: start: 20030709, end: 20030713
  5. STI571 [Suspect]
     Active Substance: IMATINIB MESYLATE
     Dosage: 100 MG, QD
     Route: 048
     Dates: start: 20030425, end: 20030608
  6. ZYLORIC [Concomitant]
     Active Substance: ALLOPURINOL
     Indication: PRODUCT USED FOR UNKNOWN INDICATION
     Route: 065
     Dates: start: 20030217, end: 20030804
  7. ONCOVIN [Concomitant]
     Active Substance: VINCRISTINE SULFATE
     Indication: CHRONIC MYELOID LEUKAEMIA
     Route: 065
     Dates: start: 20030709, end: 20030713
  8. STI571 [Suspect]
     Active Substance: IMATINIB MESYLATE
     Dosage: 400 MG, QD
     Route: 048
     Dates: start: 20030730, end: 20030804
  9. WARFARIN [Concomitant]
     Active Substance: WARFARIN
     Indication: PRODUCT USED FOR UNKNOWN INDICATION
     Route: 065
     Dates: start: 20030217, end: 20030804
  10. LASIX [Concomitant]
     Active Substance: FUROSEMIDE
     Indication: PRODUCT USED FOR UNKNOWN INDICATION
     Route: 065
     Dates: start: 20030217, end: 20030805
  11. LANIRAPID [Concomitant]
     Active Substance: METILDIGOXIN
     Indication: PRODUCT USED FOR UNKNOWN INDICATION
     Route: 065
     Dates: start: 20030217, end: 20030805
  12. STI571 [Suspect]
     Active Substance: IMATINIB MESYLATE
     Indication: PRODUCT USED FOR UNKNOWN INDICATION
     Dosage: 300 MG, QD
     Route: 048
     Dates: start: 20030217, end: 20030310
  13. STI571 [Suspect]
     Active Substance: IMATINIB MESYLATE
     Dosage: 200 MG, QD
     Route: 048
     Dates: start: 20030331, end: 20030410
  14. STI571 [Suspect]
     Active Substance: IMATINIB MESYLATE
     Dosage: 100 MG, QW3
     Route: 048
     Dates: start: 20030609, end: 20030619
  15. STI571 [Suspect]
     Active Substance: IMATINIB MESYLATE
     Dosage: 100 MG, QD
     Route: 048
     Dates: start: 20030620, end: 20030703
  16. STI571 [Suspect]
     Active Substance: IMATINIB MESYLATE
     Dosage: 200 MG, QD
     Route: 048
     Dates: start: 20030704, end: 20030707

REACTIONS (13)
  - Neutrophil count decreased [Not Recovered/Not Resolved]
  - Blast crisis in myelogenous leukaemia [Fatal]
  - White blood cell count decreased [Recovered/Resolved]
  - Gastric mucosal lesion [Unknown]
  - Haematocrit decreased [Fatal]
  - Pruritus [Recovered/Resolved]
  - Lymphocyte count decreased [Unknown]
  - Haemoglobin decreased [Fatal]
  - Disease progression [Fatal]
  - Platelet count decreased [Unknown]
  - Gastrointestinal haemorrhage [Unknown]
  - Red blood cell count decreased [Fatal]
  - Gastric cancer [Unknown]

NARRATIVE: CASE EVENT DATE: 20030310
